FAERS Safety Report 5311645-9 (Version None)
Quarter: 2007Q2

REPORT INFORMATION
  Report Type: 
  Country: None (occurrence: None)
  Receive Date: 20070430
  Receipt Date: 20060216
  Transmission Date: 20071010
  Serious: No
  Sender: FDA-Public Use
  Company Number: 2006UW02643

PATIENT
  Age: 55 Year
  Sex: Female
  Weight: 64.9 kg

DRUGS (3)
  1. ZOMIG [Suspect]
     Indication: MIGRAINE
     Dosage: TAKES ABOUT ONCE A WEEK
     Route: 048
     Dates: start: 19990101
  2. DEPAKOTE [Concomitant]
     Indication: MIGRAINE
  3. ACTONEL [Concomitant]

REACTIONS (1)
  - BONE DENSITY DECREASED [None]
